FAERS Safety Report 7618524 (Version 3)
Quarter: 2013Q1

REPORT INFORMATION
  Report Type: Spontaneous
  Country: US (occurrence: US)
  Receive Date: 20101006
  Receipt Date: 20130208
  Transmission Date: 20140127
  Serious: Yes (Hospitalization)
  Sender: FDA-Public Use
  Company Number: US-BAYER-201035414NA

PATIENT
  Age: 24 Year
  Sex: Female
  Weight: 95 kg

DRUGS (4)
  1. YASMIN [Suspect]
     Indication: CONTRACEPTION
     Dosage: UNK
     Dates: start: 20050321, end: 20070820
  2. TYLENOL [Concomitant]
     Dosage: UNK UNK, PRN
     Route: 048
  3. KLONOPIN [Concomitant]
     Indication: PANIC ATTACK
     Dosage: 2 MG, BID
     Route: 048
     Dates: start: 2005, end: 2009
  4. TRAZODONE [Concomitant]

REACTIONS (7)
  - Acute myocardial infarction [None]
  - Cerebrovascular accident [None]
  - Anxiety [None]
  - Nausea [None]
  - Pain [None]
  - Chest discomfort [None]
  - Pain [None]
